FAERS Safety Report 4576945-9 (Version None)
Quarter: 2005Q1

REPORT INFORMATION
  Report Type: 
  Country: None (occurrence: None)
  Receive Date: 20050208
  Receipt Date: 20050131
  Transmission Date: 20050727
  Serious: Yes (Other)
  Sender: FDA-Public Use
  Company Number: 2004068585

PATIENT
  Age: 66 Year
  Sex: Female

DRUGS (4)
  1. DILANTIN [Suspect]
     Indication: CONVULSION
     Dosage: ORAL
     Route: 048
     Dates: start: 19450101, end: 19960101
  2. DILANTIN [Suspect]
     Indication: EPILEPSY
     Dosage: ORAL
     Route: 048
     Dates: start: 19450101, end: 19960101
  3. PHENOBARBITAL TAB [Concomitant]
  4. CARBAMAZEPINE [Concomitant]

REACTIONS (1)
  - OSTEOPOROSIS [None]
